APPROVED DRUG PRODUCT: DILTIAZEM HYDROCHLORIDE
Active Ingredient: DILTIAZEM HYDROCHLORIDE
Strength: 120MG
Dosage Form/Route: CAPSULE, EXTENDED RELEASE;ORAL
Application: A074845 | Product #003
Applicant: BIOVAIL LABORATORIES INC
Approved: Sep 15, 1999 | RLD: No | RS: No | Type: DISCN